FAERS Safety Report 12600618 (Version 5)
Quarter: 2017Q1

REPORT INFORMATION
  Report Type: Report from Study
  Country: None (occurrence: TN)
  Receive Date: 20160727
  Receipt Date: 20170207
  Transmission Date: 20170428
  Serious: Yes (Hospitalization, Other)
  Sender: FDA-Public Use
  Company Number: TN-ABBVIE-16K-160-1684898-00

PATIENT
  Age: 43 Year
  Sex: Female

DRUGS (3)
  1. HUMIRA [Suspect]
     Active Substance: ADALIMUMAB
     Indication: PRODUCT USED FOR UNKNOWN INDICATION
     Route: 058
     Dates: start: 201506, end: 20160713
  2. ROVAMYCINE [Suspect]
     Active Substance: SPIRAMYCIN
     Indication: WOUND
     Route: 065
     Dates: start: 20160705
  3. ROVAMYCINE [Suspect]
     Active Substance: SPIRAMYCIN
     Indication: TOOTH FRACTURE

REACTIONS (5)
  - Tooth fracture [Recovered/Resolved]
  - Intestinal tuberculosis [Unknown]
  - Pyrexia [Recovered/Resolved]
  - Wound [Recovered/Resolved]
  - Fall [Unknown]

NARRATIVE: CASE EVENT DATE: 20160617
